FAERS Safety Report 7282276-9 (Version None)
Quarter: 2011Q1

REPORT INFORMATION
  Report Type: 
  Country: None (occurrence: None)
  Receive Date: 20110209
  Receipt Date: 20110128
  Transmission Date: 20110831
  Serious: Yes (Other)
  Sender: FDA-Public Use
  Company Number: NL-TEVA-265964ISR

PATIENT
  Sex: Male

DRUGS (2)
  1. PEMETREXED [Concomitant]
     Dosage: 2 ADMINISTRATIONS TOTAL
     Dates: start: 20110118, end: 20110125
  2. CISPLATIN [Suspect]
     Dates: start: 20110118, end: 20110118

REACTIONS (1)
  - ARTERIAL OCCLUSIVE DISEASE [None]
